FAERS Safety Report 7069987-5 (Version None)
Quarter: 2010Q4

REPORT INFORMATION
  Report Type: 
  Country: None (occurrence: None)
  Receive Date: 20101028
  Receipt Date: 20100720
  Transmission Date: 20110411
  Serious: No
  Sender: FDA-Public Use
  Company Number: US-WYE-H16644610

PATIENT

DRUGS (2)
  1. PROTONIX [Suspect]
     Dosage: UNKNOWN
  2. PLAVIX [Interacting]

REACTIONS (2)
  - CONTUSION [None]
  - DRUG INTERACTION [None]
